FAERS Safety Report 13174617 (Version 2)
Quarter: 2018Q1

REPORT INFORMATION
  Report Type: Spontaneous
  Country: US (occurrence: US)
  Receive Date: 20170201
  Receipt Date: 20180126
  Transmission Date: 20180508
  Serious: No
  Sender: FDA-Public Use
  Company Number: US-ABBVIE-16K-163-1800921-00

PATIENT

DRUGS (2)
  1. HUMIRA [Suspect]
     Active Substance: ADALIMUMAB
     Indication: PRODUCT USED FOR UNKNOWN INDICATION
     Route: 058
  2. BACTRIM [Suspect]
     Active Substance: SULFAMETHOXAZOLE\TRIMETHOPRIM
     Indication: PRODUCT USED FOR UNKNOWN INDICATION
     Route: 065

REACTIONS (7)
  - Staphylococcal infection [Unknown]
  - Injection site pain [Unknown]
  - Drug hypersensitivity [Unknown]
  - Drug ineffective [Unknown]
  - Condition aggravated [Recovering/Resolving]
  - Skin lesion [Unknown]
  - Injection site erythema [Unknown]
